FAERS Safety Report 8420947-9 (Version None)
Quarter: 2012Q2

REPORT INFORMATION
  Report Type: 
  Country: None (occurrence: None)
  Receive Date: 20120608
  Receipt Date: 20120601
  Transmission Date: 20120825
  Serious: Yes (Other)
  Sender: FDA-Public Use
  Company Number: US-BAYER-2012-023355

PATIENT
  Age: 22 Year
  Sex: Female

DRUGS (3)
  1. PLAN B [Concomitant]
  2. YASMIN [Suspect]
     Dosage: UNK
     Dates: start: 20060101
  3. YAZ [Suspect]
     Dosage: UNK
     Dates: start: 20060101

REACTIONS (1)
  - PULMONARY EMBOLISM [None]
